FAERS Safety Report 15984470 (Version 1)
Quarter: 2019Q1

REPORT INFORMATION
  Report Type: Spontaneous
  Country: US (occurrence: US)
  Receive Date: 20190219
  Receipt Date: 20190219
  Transmission Date: 20190418
  Serious: Yes (Hospitalization)
  Sender: FDA-Public Use
  Company Number: None

PATIENT
  Sex: Male

DRUGS (19)
  1. ADEFOVIR DIPIVOXIL. [Suspect]
     Active Substance: ADEFOVIR DIPIVOXIL
     Indication: HEPATITIS
     Route: 048
     Dates: start: 20151120
  2. JANUVIA [Concomitant]
     Active Substance: SITAGLIPTIN PHOSPHATE
  3. LOSARTAN POT [Concomitant]
     Active Substance: LOSARTAN POTASSIUM
  4. ST JOSEPH AS CHW [Concomitant]
  5. MUCINEX [Concomitant]
     Active Substance: GUAIFENESIN
  6. MULTIVITAMIN [Concomitant]
     Active Substance: VITAMINS
  7. POT CL MICRO TAB [Concomitant]
  8. ALLEGRA [Concomitant]
     Active Substance: FEXOFENADINE HYDROCHLORIDE
  9. AMLOD/BENAZP [Concomitant]
  10. METOPROLOL. [Concomitant]
     Active Substance: METOPROLOL
  11. OCUVITE [Concomitant]
     Active Substance: VITAMINS
  12. POTASSIUM [Concomitant]
     Active Substance: POTASSIUM
  13. REVLIMID [Concomitant]
     Active Substance: LENALIDOMIDE
  14. TAMSULOSIN [Concomitant]
     Active Substance: TAMSULOSIN
  15. EFFIENT [Concomitant]
     Active Substance: PRASUGREL HYDROCHLORIDE
  16. OXYCODONE [Concomitant]
     Active Substance: OXYCODONE
  17. DULOXETINE. [Concomitant]
     Active Substance: DULOXETINE
  18. LYRICA [Concomitant]
     Active Substance: PREGABALIN
  19. ATORVASTATIN [Concomitant]
     Active Substance: ATORVASTATIN

REACTIONS (2)
  - Unevaluable event [None]
  - Hospitalisation [None]
